FAERS Safety Report 18691260 (Version 2)
Quarter: 2023Q1

REPORT INFORMATION
  Report Type: Report from Study
  Country: US (occurrence: US)
  Receive Date: 20210101
  Receipt Date: 20230329
  Transmission Date: 20230418
  Serious: No
  Sender: FDA-Public Use
  Company Number: US-TAKEDA-2020TUS061530

PATIENT
  Sex: Female
  Weight: 86.168 kg

DRUGS (29)
  1. .ALPHA.1-PROTEINASE INHIBITOR HUMAN [Suspect]
     Active Substance: .ALPHA.1-PROTEINASE INHIBITOR HUMAN
     Indication: Alpha-1 antitrypsin deficiency
     Dosage: 60 MILLIGRAM/KILOGRAM, 1/WEEK
     Route: 042
     Dates: start: 20210927
  2. .ALPHA.1-PROTEINASE INHIBITOR HUMAN [Suspect]
     Active Substance: .ALPHA.1-PROTEINASE INHIBITOR HUMAN
     Indication: Alpha-1 antitrypsin deficiency
     Dosage: 60 MILLIGRAM/KILOGRAM, 1/WEEK
     Route: 042
     Dates: start: 20210927
  3. BREO ELLIPTA [Concomitant]
     Active Substance: FLUTICASONE FUROATE\VILANTEROL TRIFENATATE
  4. VITAMINS [Concomitant]
     Active Substance: VITAMINS
  5. TRAMADOL [Concomitant]
     Active Substance: TRAMADOL
  6. PRAZOSIN [Concomitant]
     Active Substance: PRAZOSIN
  7. FAMOTIDINE [Concomitant]
     Active Substance: FAMOTIDINE
  8. LAMOTRIGINE [Concomitant]
     Active Substance: LAMOTRIGINE
  9. TRAZODONE [Concomitant]
     Active Substance: TRAZODONE HYDROCHLORIDE
  10. VITAMIN B COMPLEX NOS [Concomitant]
     Active Substance: CYANOCOBALAMIN\PYRIDOXINE HYDROCHLORIDE\RIBOFLAVIN\SODIUM PANTOTHENATE\THIAMINE HYDROCHLORIDE\VITAMI
  11. OCUVITE ADULT 50+ [ASCORBIC ACID;COPPER GLUCONATE;FISH OIL;TOCOPHEROL; [Concomitant]
  12. OSTEO BI-FLEX EASE [Concomitant]
  13. LATUDA [Concomitant]
     Active Substance: LURASIDONE HYDROCHLORIDE
  14. CYCLOBENZAPRINE [Concomitant]
     Active Substance: CYCLOBENZAPRINE
  15. VALTREX [Concomitant]
     Active Substance: VALACYCLOVIR HYDROCHLORIDE
  16. LOVASTATIN [Concomitant]
     Active Substance: LOVASTATIN
  17. PROAIR HFA [Concomitant]
     Active Substance: ALBUTEROL SULFATE
  18. RESPICLICK [Concomitant]
  19. SUMATRIPTAN SUCCINATE [Concomitant]
     Active Substance: SUMATRIPTAN SUCCINATE
  20. MELATONIN [Concomitant]
     Active Substance: MELATONIN
  21. FLUTICASONE PROPIONATE [Concomitant]
     Active Substance: FLUTICASONE PROPIONATE
  22. PANTOPRAZOLE SODIUM [Concomitant]
     Active Substance: PANTOPRAZOLE SODIUM
  23. LOSARTAN [Concomitant]
     Active Substance: LOSARTAN
  24. POTASSIUM [Concomitant]
     Active Substance: POTASSIUM
  25. CETIRIZINE [Concomitant]
     Active Substance: CETIRIZINE HYDROCHLORIDE
  26. ZOFRAN ODT [Concomitant]
     Active Substance: ONDANSETRON HYDROCHLORIDE
  27. ALBUTEROL SULFATE [Concomitant]
     Active Substance: ALBUTEROL SULFATE
  28. ASPIRIN [Concomitant]
     Active Substance: ASPIRIN
  29. PROPRANOLOL [Concomitant]
     Active Substance: PROPRANOLOL HYDROCHLORIDE

REACTIONS (5)
  - Oropharyngeal pain [Unknown]
  - Multiple allergies [Unknown]
  - Malaise [Unknown]
  - Rhinorrhoea [Unknown]
  - Product dose omission issue [Unknown]
